FAERS Safety Report 9891182 (Version 1)
Quarter: 2014Q1

REPORT INFORMATION
  Report Type: Spontaneous
  Country: TN (occurrence: None)
  Receive Date: 20140210
  Receipt Date: 20140210
  Transmission Date: 20141002
  Serious: Yes (Other)
  Sender: FDA-Public Use
  Company Number: 2014P1000797

PATIENT
  Age: 36 Year
  Sex: Female

DRUGS (4)
  1. NICARDIPINE [Suspect]
     Indication: HYPERTENSION
     Dates: start: 201204, end: 2012
  2. LERCANIDIPINE [Suspect]
     Indication: HYPERTENSION
     Dates: start: 201204, end: 2012
  3. NITRENDIPINE [Suspect]
     Indication: HYPERTENSION
  4. ACEBUTOLOL [Concomitant]

REACTIONS (3)
  - Erythema [None]
  - Papule [None]
  - Dermatitis [None]
